FAERS Safety Report 10355388 (Version 1)
Quarter: 2014Q3

REPORT INFORMATION
  Report Type: Spontaneous
  Country: US (occurrence: US)
  Receive Date: 20140731
  Receipt Date: 20140731
  Transmission Date: 20150326
  Serious: No
  Sender: FDA-Public Use
  Company Number: US-TARO-2014P1001876

PATIENT
  Sex: Female
  Weight: 58.97 kg

DRUGS (1)
  1. FLUOCINONIDE CREAM USP 0.05% [Suspect]
     Active Substance: FLUOCINONIDE
     Indication: PSORIASIS
     Dosage: BID
     Route: 061
     Dates: start: 20130627, end: 201307

REACTIONS (4)
  - Psoriasis [Not Recovered/Not Resolved]
  - Laboratory test abnormal [Unknown]
  - Skin atrophy [Not Recovered/Not Resolved]
  - Arthritis [Unknown]

NARRATIVE: CASE EVENT DATE: 2013
